FAERS Safety Report 15532217 (Version 1)
Quarter: 2018Q4

REPORT INFORMATION
  Report Type: Spontaneous
  Country: AR (occurrence: AR)
  Receive Date: 20181019
  Receipt Date: 20181019
  Transmission Date: 20190205
  Serious: Yes (Other)
  Sender: FDA-Public Use
  Company Number: AR-AMGEN-ARGSP2018145432

PATIENT
  Age: 71 Year
  Sex: Female

DRUGS (1)
  1. ENBREL [Suspect]
     Active Substance: ETANERCEPT
     Indication: PSORIASIS
     Dosage: 50 MG, WEEKLY
     Route: 065
     Dates: start: 20090526

REACTIONS (1)
  - Lower limb fracture [Recovering/Resolving]

NARRATIVE: CASE EVENT DATE: 201810
